APPROVED DRUG PRODUCT: NATEGLINIDE
Active Ingredient: NATEGLINIDE
Strength: 60MG
Dosage Form/Route: TABLET;ORAL
Application: A077467 | Product #001
Applicant: TEVA PHARMACEUTICALS USA
Approved: Sep 9, 2009 | RLD: No | RS: No | Type: DISCN